FAERS Safety Report 17360480 (Version 2)
Quarter: 2020Q1

REPORT INFORMATION
  Report Type: Report from Study
  Country: US (occurrence: US)
  Receive Date: 20200203
  Receipt Date: 20200316
  Transmission Date: 20200409
  Serious: Yes (Hospitalization, Other)
  Sender: FDA-Public Use
  Company Number: US-ROCHE-2518201

PATIENT
  Age: 73 Year
  Sex: Male
  Weight: 85.8 kg

DRUGS (4)
  1. PEMETREXED. [Suspect]
     Active Substance: PEMETREXED
     Indication: NON-SMALL CELL LUNG CANCER
     Dosage: 200 MG/M^2 ON DAY 1 OF A 21-DAY CYCLE FOR 4 - 6 CYCLES (PER PROTOCOL)?RECEIVED 3 DOSES?LAST DOSE OF
     Route: 065
     Dates: start: 20191111
  2. XARELTO [Suspect]
     Active Substance: RIVAROXABAN
     Indication: NON-SMALL CELL LUNG CANCER
     Route: 048
  3. CARBOPLATIN. [Suspect]
     Active Substance: CARBOPLATIN
     Indication: NON-SMALL CELL LUNG CANCER
     Dosage: AREA UNDER THE CURVE (AUC) 6 ON DAY 1 OF A 21-DAY CYCLE FOR 4 - 6 CYCLES (DOSE PER PROTOCOL)?RECEIVE
     Route: 065
     Dates: start: 20191111
  4. PIRFENIDONE. [Suspect]
     Active Substance: PIRFENIDONE
     Indication: NON-SMALL CELL LUNG CANCER
     Dosage: DOSE ESCALATION: LEVEL 1:ONE CAPSULE (TOTAL DAILY DOSE 801 MG); LEVEL 2: TWO CAPSULES (TOTAL DAILY D
     Route: 048
     Dates: start: 20191111

REACTIONS (5)
  - Haematuria [Not Recovered/Not Resolved]
  - Odynophagia [Not Recovered/Not Resolved]
  - Thrombocytopenia [Unknown]
  - Neutropenia [Unknown]
  - Anaemia [Recovered/Resolved with Sequelae]

NARRATIVE: CASE EVENT DATE: 20200106
